FAERS Safety Report 7548653-3 (Version None)
Quarter: 2011Q2

REPORT INFORMATION
  Report Type: 
  Country: None (occurrence: None)
  Receive Date: 20110615
  Receipt Date: 20110531
  Transmission Date: 20111010
  Serious: No
  Sender: FDA-Public Use
  Company Number: US-B.I. PHARMACEUTICALS,INC./RIDGEFIELD-2011-BP-12191BP

PATIENT
  Age: 72 Year
  Sex: Female
  Weight: 65.77 kg

DRUGS (7)
  1. GLUCOPHAGE XR [Concomitant]
     Dosage: 500 MG
  2. LEVEMIR [Concomitant]
  3. APIDRA [Concomitant]
  4. NORVASC [Concomitant]
  5. PRADAXA [Suspect]
     Indication: ATRIAL FIBRILLATION
     Dosage: 300 MG
     Dates: start: 20110414
  6. HYZAAR [Concomitant]
  7. ASPIRIN [Concomitant]

REACTIONS (1)
  - INTERNATIONAL NORMALISED RATIO INCREASED [None]
